FAERS Safety Report 8336454-8 (Version None)
Quarter: 2012Q2

REPORT INFORMATION
  Report Type: 
  Country: None (occurrence: None)
  Receive Date: 20120504
  Receipt Date: 20120430
  Transmission Date: 20120825
  Serious: Yes (Other)
  Sender: FDA-Public Use
  Company Number: US-PFIZER INC-2012106348

PATIENT
  Sex: Male

DRUGS (3)
  1. LIPITOR [Suspect]
     Indication: BLOOD CHOLESTEROL INCREASED
     Dosage: 80 MG, 1X/DAY
     Route: 048
     Dates: start: 20110101
  2. REMICADE [Concomitant]
     Indication: ARTHRITIS
     Dosage: UNK
  3. TRAMADOL [Concomitant]
     Indication: PAIN IN EXTREMITY
     Dosage: UNK

REACTIONS (2)
  - PERIPHERAL VASCULAR DISORDER [None]
  - PAIN IN EXTREMITY [None]
